FAERS Safety Report 13579427 (Version 1)
Quarter: 2017Q2

REPORT INFORMATION
  Report Type: Report from Study
  Country: None (occurrence: GB)
  Receive Date: 20170525
  Receipt Date: 20170525
  Transmission Date: 20170830
  Serious: Yes (Other)
  Sender: FDA-Public Use
  Company Number: GB-ABBVIE-17K-167-1973953-00

PATIENT
  Sex: Female

DRUGS (1)
  1. HUMIRA [Suspect]
     Active Substance: ADALIMUMAB
     Indication: PSORIATIC ARTHROPATHY
     Route: 058

REACTIONS (6)
  - Candida infection [Unknown]
  - Lower respiratory tract infection [Unknown]
  - Spinal fusion acquired [Unknown]
  - Asthma [Unknown]
  - Urinary tract infection [Unknown]
  - Sputum discoloured [Not Recovered/Not Resolved]
